FAERS Safety Report 10223932 (Version 1)
Quarter: 2014Q2

REPORT INFORMATION
  Report Type: Spontaneous
  Country: BE (occurrence: BE)
  Receive Date: 20140609
  Receipt Date: 20140609
  Transmission Date: 20141212
  Serious: Yes (Other)
  Sender: FDA-Public Use
  Company Number: BE-AMGEN INC.-BELSP2014042632

PATIENT
  Age: 72 Year
  Sex: Male
  Weight: 82 kg

DRUGS (10)
  1. ENBREL [Suspect]
     Indication: PRODUCT USED FOR UNKNOWN INDICATION
     Dosage: 50 MG, WEEKLY
     Route: 058
     Dates: start: 20110627
  2. ASAFLOW [Concomitant]
     Dosage: 80 MG, 1X/DAY
     Route: 048
  3. APROVEL [Concomitant]
     Dosage: UNK
  4. BISOPROLOL [Concomitant]
     Dosage: UNK
  5. SIMVASTATIN [Concomitant]
     Dosage: UNK
  6. PAMIDOL                            /00020001/ [Concomitant]
     Dosage: UNK
  7. TEMESTA                            /00273201/ [Concomitant]
     Dosage: UNK
  8. PROSTA URGENIN [Concomitant]
     Dosage: UNK
  9. RHUMAL EXTRA [Concomitant]
     Dosage: UNK
  10. COGNITON [Concomitant]
     Dosage: UNK

REACTIONS (2)
  - Dental necrosis [Not Recovered/Not Resolved]
  - Dental caries [Not Recovered/Not Resolved]
